FAERS Safety Report 23197808 (Version 1)
Quarter: 2023Q4

REPORT INFORMATION
  Report Type: Spontaneous
  Country: US (occurrence: None)
  Receive Date: 20231116
  Receipt Date: 20231116
  Transmission Date: 20240110
  Serious: No
  Sender: FDA-Public Use
  Company Number: None

PATIENT
  Age: 86 Year
  Sex: Female
  Weight: 45.36 kg

DRUGS (9)
  1. LAGEVRIO [Suspect]
     Active Substance: MOLNUPIRAVIR
     Indication: COVID-19
     Dosage: FREQUENCY : EVERY 12 HOURS;?
     Route: 048
     Dates: start: 20231008, end: 20231009
  2. ELIQUIS [Concomitant]
     Active Substance: APIXABAN
  3. PANTOPRAZOLE [Concomitant]
     Active Substance: PANTOPRAZOLE
  4. ATORVASTATIN [Concomitant]
     Active Substance: ATORVASTATIN
  5. ATENOLOL [Concomitant]
     Active Substance: ATENOLOL
  6. PAROXETINE [Concomitant]
     Active Substance: PAROXETINE
  7. CLONAZEPAM [Concomitant]
     Active Substance: CLONAZEPAM
  8. VITAMIN D [Concomitant]
     Active Substance: VITAMIN D NOS
  9. ASPIRIN [Concomitant]
     Active Substance: ASPIRIN

REACTIONS (1)
  - Epistaxis [None]
